FAERS Safety Report 12432885 (Version 2)
Quarter: 2016Q3

REPORT INFORMATION
  Report Type: Spontaneous
  Country: US (occurrence: US)
  Receive Date: 20160603
  Receipt Date: 20160801
  Transmission Date: 20161109
  Serious: Yes (Hospitalization)
  Sender: FDA-Public Use
  Company Number: US-SA-2016SA103009

PATIENT
  Age: 66 Year
  Sex: Female

DRUGS (6)
  1. LANTUS SOLOSTAR [Suspect]
     Active Substance: INSULIN GLARGINE
     Indication: TYPE 2 DIABETES MELLITUS
     Dosage: THERAPY RESTARTED ABOUT 2 MONTHS BACK DOSE:22 UNIT(S)
     Route: 065
     Dates: start: 2016
  2. HUMALOG [Concomitant]
     Active Substance: INSULIN LISPRO
     Dosage: FREQ: 2-3 TIMES DAILY DOSE:4 UNIT(S)
  3. LANTUS SOLOSTAR [Suspect]
     Active Substance: INSULIN GLARGINE
     Indication: TYPE 2 DIABETES MELLITUS
     Route: 065
     Dates: start: 20160427
  4. SOLOSTAR [Concomitant]
     Active Substance: DEVICE
  5. NOVOLOG [Concomitant]
     Active Substance: INSULIN ASPART
  6. SOLOSTAR [Concomitant]
     Active Substance: DEVICE
     Dates: start: 201603

REACTIONS (1)
  - Hip fracture [Unknown]
